FAERS Safety Report 4296015-7 (Version None)
Quarter: 2004Q1

REPORT INFORMATION
  Report Type: 
  Country: None (occurrence: None)
  Receive Date: 20040212
  Receipt Date: 20040127
  Transmission Date: 20041129
  Serious: Yes (Death, Other)
  Sender: FDA-Public Use
  Company Number: CHNY2004JP00455

PATIENT
  Age: 70 Year
  Sex: Male
  Weight: 45 kg

DRUGS (4)
  1. TAVEGYL (NCH) (CLEMASTINE HYDROGEN FUMARATE) [Suspect]
     Indication: PRURITUS
     Dosage: 2 MG, QD, ORAL
     Route: 048
     Dates: start: 20031204, end: 20031218
  2. TAVEGYL (NCH) (CLEMASTINE HYDROGEN FUMARATE) [Suspect]
     Indication: PRURITUS
     Dosage: 2 MG, QD, ORAL
     Route: 048
     Dates: start: 20040108, end: 20040109
  3. TAVEGYL (NCH) (CLEMASTINE HYDROGEN FUMARATE) [Suspect]
     Indication: PRURITUS
     Dosage: 2 MG, QD, ORAL
     Route: 048
     Dates: start: 20040110, end: 20040117
  4. PHENOBAL [Concomitant]

REACTIONS (8)
  - ANURIA [None]
  - ASTHENIA [None]
  - BLOOD PRESSURE DECREASED [None]
  - COMA [None]
  - HEPATIC FUNCTION ABNORMAL [None]
  - LIVER DISORDER [None]
  - SOMNOLENCE [None]
  - WEIGHT DECREASED [None]
